FAERS Safety Report 12791680 (Version 1)
Quarter: 2016Q3

REPORT INFORMATION
  Report Type: Spontaneous
  Country: GB (occurrence: GB)
  Receive Date: 20160929
  Receipt Date: 20160929
  Transmission Date: 20161109
  Serious: Yes (Other)
  Sender: FDA-Public Use
  Company Number: GB-TEVA-694966ACC

PATIENT
  Age: 84 Year
  Sex: Female
  Weight: 84 kg

DRUGS (19)
  1. ALENDRONIC ACID [Concomitant]
     Active Substance: ALENDRONIC ACID
     Dosage: ON SAME DAY EACH WEEK, TAKE AS ...
     Dates: start: 20151102
  2. FERROUS SULFATE. [Concomitant]
     Active Substance: FERROUS SULFATE
     Dosage: 2 DOSAGE FORMS DAILY;
     Dates: start: 20160817
  3. FUROSEMIDE. [Concomitant]
     Active Substance: FUROSEMIDE
     Dosage: 1 DOSAGE FORMS DAILY; EACH MORNING
     Dates: start: 20160901
  4. AMITRIPTYLINE HYDROCHLORIDE. [Concomitant]
     Active Substance: AMITRIPTYLINE HYDROCHLORIDE
     Indication: PAIN IN EXTREMITY
     Dosage: 2 DOSAGE FORMS DAILY; AT NIGHT
     Dates: start: 20150908
  5. HYLO-TEAR [Concomitant]
     Dosage: 8 DOSAGE FORMS DAILY; TO EACH EYE
     Dates: start: 20150723
  6. ATORVASTATIN [Concomitant]
     Active Substance: ATORVASTATIN
     Dosage: 1 DOSAGE FORMS DAILY;
     Dates: start: 20150908
  7. LISINOPRIL. [Suspect]
     Active Substance: LISINOPRIL
     Dates: start: 20150908
  8. LEVOTHYROXINE. [Concomitant]
     Active Substance: LEVOTHYROXINE
     Dosage: 1 DOSAGE FORMS DAILY;
     Dates: start: 20160321
  9. COCODAMOL [Concomitant]
     Active Substance: ACETAMINOPHEN\CODEINE PHOSPHATE
     Dosage: TAKE 1 OR 2 4 TIMES/DAY
     Dates: start: 20160630, end: 20160712
  10. E45 [Concomitant]
     Active Substance: LANOLIN\LIGHT MINERAL OIL\PARAFFIN
     Dosage: APPLY AS NEEDED
     Dates: start: 20120803
  11. OVESTIN [Concomitant]
     Active Substance: ESTRIOL
     Dosage: 1 DOSAGE FORMS DAILY; AT NIGHT FOR 2 WEEKS, THE...
     Route: 067
     Dates: start: 20131104, end: 20160620
  12. PARACETAMOL [Concomitant]
     Active Substance: ACETAMINOPHEN
     Dosage: TAKE ONE OR TWO TABLETS UP TO FOUR TIMES A DAY ...
     Dates: start: 20160321
  13. CIPROFLOXACIN. [Concomitant]
     Active Substance: CIPROFLOXACIN
     Indication: URINARY TRACT INFECTION
     Dosage: 2 DOSAGE FORMS DAILY; WHEN FURTHER URINARY INFECTION
     Dates: start: 20160817, end: 20160822
  14. CO-AMILOFRUSE [Concomitant]
     Active Substance: AMILORIDE\FUROSEMIDE
     Dosage: 1 DOSAGE FORMS DAILY; EACH MORNING
     Dates: start: 20160321, end: 20160901
  15. VITA-POS [Concomitant]
     Dosage: 2 DOSAGE FORMS DAILY; EACH NIGHT TO EACH EYE
     Dates: start: 20150723
  16. ASPIRIN. [Concomitant]
     Active Substance: ASPIRIN
     Dosage: 1 DOSAGE FORMS DAILY; WITH FOOD
     Dates: start: 20150908
  17. GAVISCON ADVANCE [Concomitant]
     Active Substance: POTASSIUM BICARBONATE\SODIUM ALGINATE
     Dosage: 5ML - 10ML UP TO 4 TIMES/DAY
     Dates: start: 20141210
  18. KALCIPOS-D [Concomitant]
     Active Substance: CALCIUM CARBONATE\CHOLECALCIFEROL
     Indication: OSTEOPOROSIS
     Dosage: 1 DOSAGE FORMS DAILY;
     Dates: start: 20160321
  19. VOLTAROL [Concomitant]
     Active Substance: DICLOFENAC SODIUM
     Indication: PAIN
     Dosage: APPLY 3-4 TIMES A DAY WHEN NEEDED
     Dates: start: 20150408

REACTIONS (1)
  - Glomerular filtration rate decreased [Recovering/Resolving]

NARRATIVE: CASE EVENT DATE: 20160901
